FAERS Safety Report 5566300-7 (Version None)
Quarter: 2007Q4

REPORT INFORMATION
  Report Type: 
  Country: None (occurrence: None)
  Receive Date: 20071219
  Receipt Date: 20071212
  Transmission Date: 20080405
  Serious: No
  Sender: FDA-Public Use
  Company Number: CA-BAXTER-2007BH009796

PATIENT
  Age: 75 Year
  Sex: Male

DRUGS (20)
  1. DIANEAL [Suspect]
     Indication: PERITONEAL DIALYSIS
     Dosage: DOSE UNIT:UNKNOWN
     Route: 033
     Dates: end: 20071208
  2. AMITRIPTLINE HCL [Concomitant]
     Indication: DRUG USE FOR UNKNOWN INDICATION
     Route: 048
     Dates: start: 20060608
  3. AMLODIPINE [Concomitant]
     Indication: DRUG USE FOR UNKNOWN INDICATION
     Route: 048
     Dates: start: 20061122
  4. AMOXICILLIN [Concomitant]
     Indication: DRUG USE FOR UNKNOWN INDICATION
     Route: 048
     Dates: start: 20070508
  5. CALCITRIOL [Concomitant]
     Indication: DRUG USE FOR UNKNOWN INDICATION
     Route: 048
     Dates: start: 20070606
  6. CALCIUM CARBONATE [Concomitant]
     Indication: DRUG USE FOR UNKNOWN INDICATION
     Route: 048
     Dates: start: 20070606
  7. DARBEPOETIN ALFA [Concomitant]
     Indication: DRUG USE FOR UNKNOWN INDICATION
     Route: 058
     Dates: start: 20071211
  8. DOCUSATE CALCIUM [Concomitant]
     Indication: DRUG USE FOR UNKNOWN INDICATION
     Dosage: DOSE UNIT:UNKNOWN
     Route: 048
     Dates: start: 20070607
  9. ECHINACEA ANGUSTIFOLIA [Concomitant]
     Indication: DRUG USE FOR UNKNOWN INDICATION
     Route: 048
     Dates: start: 20070606
  10. HERBAL TAB [Concomitant]
     Indication: DRUG USE FOR UNKNOWN INDICATION
     Route: 048
     Dates: start: 20070822
  11. HERBAL TAB [Concomitant]
     Route: 048
     Dates: start: 20070822
  12. HERBAL TAB [Concomitant]
     Route: 048
     Dates: start: 20070822
  13. VITAMIN CAP [Concomitant]
     Indication: DRUG USE FOR UNKNOWN INDICATION
     Route: 048
     Dates: start: 20070825
  14. MUPIROCIN [Concomitant]
     Indication: DRUG USE FOR UNKNOWN INDICATION
     Route: 061
     Dates: start: 20060914
  15. SENOKOT [Concomitant]
     Indication: DRUG USE FOR UNKNOWN INDICATION
     Route: 048
     Dates: start: 20070606
  16. SIMVASTATIN [Concomitant]
     Indication: DRUG USE FOR UNKNOWN INDICATION
     Route: 048
     Dates: start: 20061006
  17. VALSARTAN [Concomitant]
     Indication: DRUG USE FOR UNKNOWN INDICATION
     Route: 048
     Dates: start: 20060424
  18. LACTULOSE [Concomitant]
     Indication: DRUG USE FOR UNKNOWN INDICATION
     Route: 048
     Dates: start: 20060630
  19. LORAZEPAM [Concomitant]
     Indication: DRUG USE FOR UNKNOWN INDICATION
     Dosage: DOSE UNIT:UNKNOWN
     Route: 048
     Dates: start: 20070727
  20. QUININE SULFATE [Concomitant]
     Indication: DRUG USE FOR UNKNOWN INDICATION
     Route: 048
     Dates: start: 20060427

REACTIONS (2)
  - FUNGAL PERITONITIS [None]
  - PERITONITIS BACTERIAL [None]
